FAERS Safety Report 11835406 (Version 1)
Quarter: 2015Q4

REPORT INFORMATION
  Report Type: Spontaneous
  Country: US (occurrence: None)
  Receive Date: 20151214
  Receipt Date: 20151214
  Transmission Date: 20160305
  Serious: No
  Sender: FDA-Public Use
  Company Number: None

PATIENT
  Age: 38 Year
  Sex: Female

DRUGS (14)
  1. LORATADINE. [Concomitant]
     Active Substance: LORATADINE
  2. NUVIGIL [Concomitant]
     Active Substance: ARMODAFINIL
  3. ATENOLOL. [Concomitant]
     Active Substance: ATENOLOL
  4. KADIAN [Concomitant]
     Active Substance: MORPHINE SULFATE
  5. DURAPREP [Suspect]
     Active Substance: IODINE POVACRYLEX\ISOPROPYL ALCOHOL
     Indication: ANTIBIOTIC PROPHYLAXIS
  6. SYNTHROID [Concomitant]
     Active Substance: LEVOTHYROXINE SODIUM
  7. OXYCODONE [Concomitant]
     Active Substance: OXYCODONE
  8. VITAMIN D [Concomitant]
     Active Substance: CHOLECALCIFEROL
  9. LASIX [Concomitant]
     Active Substance: FUROSEMIDE
  10. BACLOFEN. [Concomitant]
     Active Substance: BACLOFEN
  11. 2 IN 1 TPN WITH INJECTABLE MULTIVITAMINS [Concomitant]
  12. WELLBUTRIN XL [Concomitant]
     Active Substance: BUPROPION HYDROCHLORIDE
  13. POTASSIUM [Concomitant]
     Active Substance: POTASSIUM
  14. COLACE [Concomitant]
     Active Substance: DOCUSATE SODIUM

REACTIONS (4)
  - Reaction to drug excipients [None]
  - Application site rash [None]
  - Application site vesicles [None]
  - Impaired healing [None]

NARRATIVE: CASE EVENT DATE: 20151127
